FAERS Safety Report 6450398-8 (Version None)
Quarter: 2009Q4

REPORT INFORMATION
  Report Type: 
  Country: None (occurrence: None)
  Receive Date: 20091123
  Receipt Date: 20091111
  Transmission Date: 20100525
  Serious: Yes (Hospitalization)
  Sender: FDA-Public Use
  Company Number: US-BRISTOL-MYERS SQUIBB COMPANY-14763890

PATIENT
  Age: 79 Year
  Sex: Female
  Weight: 63 kg

DRUGS (28)
  1. CETUXIMAB [Suspect]
     Indication: NON-SMALL CELL LUNG CANCER
     Dosage: LOADING DOSE 700MG (400MG/M2) DOSE CHANGED TO 435-452MG THEN TO 438MG
     Route: 042
     Dates: start: 20090424, end: 20090813
  2. PEMETREXED DISODIUM [Suspect]
     Indication: NON-SMALL CELL LUNG CANCER
     Dosage: INITIAL DOSE 870 MG DOSE CORRECTED TO 875MG
     Route: 042
     Dates: start: 20090424, end: 20090813
  3. VITAMIN B-12 [Concomitant]
     Indication: PROPHYLAXIS
  4. FOLIC ACID [Concomitant]
     Indication: PROPHYLAXIS
  5. HYDROXYCHLOROQUINE SULFATE [Concomitant]
     Indication: SYSTEMIC LUPUS ERYTHEMATOSUS
     Dates: start: 19990101, end: 20090723
  6. LEVOTHYROXINE SODIUM [Concomitant]
     Indication: HYPOTHYROIDISM
     Dates: start: 19890101
  7. MAGNESIUM [Concomitant]
     Indication: BLOOD MAGNESIUM DECREASED
     Dates: start: 20080101
  8. LORAZEPAM [Concomitant]
     Indication: ANXIETY
     Dates: start: 20080101
  9. LORAZEPAM [Concomitant]
     Indication: INSOMNIA
     Dates: start: 20080101
  10. POTASSIUM CHLORIDE [Concomitant]
     Indication: ELECTROLYTE SUBSTITUTION THERAPY
     Dates: start: 20090101
  11. FUROSEMIDE [Concomitant]
     Indication: HYPERTENSION
     Dates: start: 20090101
  12. NEUPOGEN [Concomitant]
     Indication: NEUTROPHIL COUNT DECREASED
     Dates: start: 20080418
  13. BENADRYL [Concomitant]
     Indication: HYPERSENSITIVITY
  14. ACETAMINOPHEN [Concomitant]
     Indication: PAIN
  15. ACETAMINOPHEN [Concomitant]
     Indication: PYREXIA
  16. PEPTO-BISMOL [Concomitant]
     Indication: GASTROINTESTINAL DISORDER
  17. PREDNISONE [Concomitant]
     Indication: HYPERSENSITIVITY
     Dates: start: 20080101
  18. TETRACYCLINE [Concomitant]
     Indication: RASH
     Dates: start: 20090512, end: 20090824
  19. VALIUM [Concomitant]
     Indication: ANXIETY
     Dates: start: 20090717
  20. DIGOXIN [Concomitant]
     Indication: ARRHYTHMIA
     Dates: start: 20090730
  21. METOPROLOL TARTRATE [Concomitant]
     Indication: ACUTE CORONARY SYNDROME
     Dates: start: 20090730
  22. LIPITOR [Concomitant]
     Indication: ACUTE CORONARY SYNDROME
     Dates: start: 20090731
  23. CARDIZEM [Concomitant]
     Indication: ARRHYTHMIA
     Dates: start: 20090801
  24. ZOCOR [Concomitant]
     Indication: HYPERLIPIDAEMIA
  25. COLACE [Concomitant]
     Indication: CONSTIPATION
     Dates: start: 20090731
  26. HEPARIN [Concomitant]
     Indication: ACUTE CORONARY SYNDROME
     Dates: start: 20090730
  27. PLAVIX [Concomitant]
     Indication: ACUTE CORONARY SYNDROME
     Dates: start: 20090730
  28. ASPIRIN [Concomitant]
     Indication: ACUTE CORONARY SYNDROME
     Dates: start: 20090730

REACTIONS (1)
  - ATRIAL FIBRILLATION [None]
